FAERS Safety Report 6261003-8 (Version None)
Quarter: 2009Q3

REPORT INFORMATION
  Report Type: 
  Country: None (occurrence: None)
  Receive Date: 20090709
  Receipt Date: 20090630
  Transmission Date: 20100115
  Serious: Yes (Other)
  Sender: FDA-Public Use
  Company Number: US-BIOGENIDEC-2009BI015135

PATIENT
  Age: 57 Year
  Sex: Female

DRUGS (2)
  1. AVONEX [Suspect]
     Indication: MULTIPLE SCLEROSIS
     Route: 030
     Dates: start: 19980101, end: 20030101
  2. AVONEX [Suspect]
     Route: 030
     Dates: start: 20030101

REACTIONS (6)
  - ANTIBODY TEST ABNORMAL [None]
  - HEPATIC STEATOSIS [None]
  - RED BLOOD CELL SEDIMENTATION RATE INCREASED [None]
  - SJOGREN'S SYNDROME [None]
  - VIRAL INFECTION [None]
  - VITAMIN D DEFICIENCY [None]
